FAERS Safety Report 24902199 (Version 1)
Quarter: 2025Q1

REPORT INFORMATION
  Report Type: Spontaneous
  Country: CN (occurrence: CN)
  Receive Date: 20250129
  Receipt Date: 20250129
  Transmission Date: 20250408
  Serious: Yes (Other)
  Sender: NOVITIUM PHARMA
  Company Number: CN-NOVITIUMPHARMA-2025CNNVP00204

PATIENT
  Age: 63 Year
  Sex: Male

DRUGS (9)
  1. DEXAMETHASONE [Suspect]
     Active Substance: DEXAMETHASONE
     Indication: High-grade B-cell lymphoma
  2. PREDNISONE [Suspect]
     Active Substance: PREDNISONE
     Indication: Marginal zone lymphoma
  3. RITUXIMAB [Concomitant]
     Active Substance: RITUXIMAB
     Indication: Marginal zone lymphoma
  4. CYCLOPHOSPHAMIDE [Concomitant]
     Active Substance: CYCLOPHOSPHAMIDE
     Indication: Marginal zone lymphoma
  5. DOXORUBICIN [Concomitant]
     Active Substance: DOXORUBICIN
     Indication: Marginal zone lymphoma
  6. VINDESINE [Concomitant]
     Active Substance: VINDESINE
     Indication: Marginal zone lymphoma
  7. VINCRISTINE [Concomitant]
     Active Substance: VINCRISTINE
     Indication: High-grade B-cell lymphoma
  8. Mitoxantrone-liposomal [Concomitant]
     Indication: High-grade B-cell lymphoma
  9. OBINUTUZUMAB [Concomitant]
     Active Substance: OBINUTUZUMAB
     Indication: High-grade B-cell lymphoma

REACTIONS (4)
  - Myelosuppression [Unknown]
  - Infection [Unknown]
  - Hepatic function abnormal [Unknown]
  - Toxicity to various agents [Unknown]
